FAERS Safety Report 6395918-7 (Version None)
Quarter: 2009Q4

REPORT INFORMATION
  Report Type: 
  Country: None (occurrence: None)
  Receive Date: 20091009
  Receipt Date: 20090902
  Transmission Date: 20100525
  Serious: No
  Sender: FDA-Public Use
  Company Number: A0805681A

PATIENT
  Age: 55 Year
  Sex: Female

DRUGS (1)
  1. TYKERB [Suspect]
     Dates: start: 20090101

REACTIONS (6)
  - ANGER [None]
  - ASTHENIA [None]
  - FATIGUE [None]
  - RASH VESICULAR [None]
  - URTICARIA [None]
  - WEIGHT LOSS POOR [None]
